FAERS Safety Report 8774639 (Version 2)
Quarter: 2012Q4

REPORT INFORMATION
  Report Type: 
  Country: JP (occurrence: JP)
  Receive Date: 20120907
  Receipt Date: 20121030
  Transmission Date: 20130627
  Serious: Yes (Hospitalization)
  Sender: FDA-Public Use
  Company Number: JP-009507513-1208JPN010271

PATIENT
  Age: 67 Year
  Weight: 74 kg

DRUGS (5)
  1. PEGINTRON [Suspect]
     Indication: HEPATITIS C
     Dosage: 1.5 Microgram per kilogram, qw
     Route: 058
     Dates: start: 20120703
  2. REBETOL [Suspect]
     Indication: HEPATITIS C
     Dosage: 800 mg, qd
     Route: 048
     Dates: start: 20120703
  3. TELAVIC [Suspect]
     Indication: HEPATITIS C
     Dosage: 1500 mg, qd
     Route: 048
     Dates: start: 20120703, end: 20120807
  4. TAKEPRON [Concomitant]
     Route: 048
  5. BLOPRESS [Concomitant]
     Route: 048

REACTIONS (2)
  - Rash [Not Recovered/Not Resolved]
  - Erythema multiforme [Not Recovered/Not Resolved]
